FAERS Safety Report 12431956 (Version 1)
Quarter: 2016Q2

REPORT INFORMATION
  Report Type: Spontaneous
  Country: US (occurrence: US)
  Receive Date: 20160603
  Receipt Date: 20160603
  Transmission Date: 20160815
  Serious: No
  Sender: FDA-Public Use
  Company Number: US-BAYER-2016-100135

PATIENT
  Sex: Female
  Weight: 59.86 kg

DRUGS (2)
  1. CITRUCEL [Concomitant]
     Active Substance: METHYLCELLULOSE (4000 MPA.S)
     Dosage: UNK UNK, QD (EVERY NIGHT)
  2. MIRALAX [Suspect]
     Active Substance: POLYETHYLENE GLYCOL 3350
     Indication: GASTROINTESTINAL MOTILITY DISORDER
     Dosage: 1 DF, QD (EVERY NIGHT.)
     Route: 048

REACTIONS (4)
  - Drug prescribing error [None]
  - Dysgeusia [None]
  - Product use issue [None]
  - Patient dissatisfaction with treatment [None]
